FAERS Safety Report 20606320 (Version 2)
Quarter: 2022Q2

REPORT INFORMATION
  Report Type: Spontaneous
  Country: None (occurrence: US)
  Receive Date: 20220317
  Receipt Date: 20220427
  Transmission Date: 20220721
  Serious: No
  Sender: FDA-Public Use
  Company Number: US-FDC LIMITED-2126872

PATIENT
  Sex: Female

DRUGS (1)
  1. CIPROFLOXACIN [Suspect]
     Active Substance: CIPROFLOXACIN
     Indication: Product used for unknown indication
     Route: 047
     Dates: start: 20220305

REACTIONS (3)
  - Pharyngeal swelling [Unknown]
  - Swollen tongue [Unknown]
  - Dysphagia [Unknown]

NARRATIVE: CASE EVENT DATE: 20220305
